FAERS Safety Report 8410572-8 (Version None)
Quarter: 2012Q2

REPORT INFORMATION
  Report Type: 
  Country: None (occurrence: None)
  Receive Date: 20120323
  Receipt Date: 20111201
  Transmission Date: 20120825
  Serious: Yes (Hospitalization)
  Sender: FDA-Public Use
  Company Number: 163-21880-11120392

PATIENT
  Age: 54 Year
  Sex: Male
  Weight: 93.8946 kg

DRUGS (11)
  1. REVLIMID [Suspect]
     Indication: MULTIPLE MYELOMA
     Dosage: 25 MG; QD X 14 DAYS, PO, 25 MG,1 IN 1 D, PO, 15 MG, EVERY M, W, F X 3 WEEKS ON 1 WEEK OFF, PO
     Route: 048
     Dates: start: 20110715
  2. REVLIMID [Suspect]
     Indication: MULTIPLE MYELOMA
     Dosage: 25 MG; QD X 14 DAYS, PO, 25 MG,1 IN 1 D, PO, 15 MG, EVERY M, W, F X 3 WEEKS ON 1 WEEK OFF, PO
     Route: 048
     Dates: start: 20110501
  3. REVLIMID [Suspect]
     Indication: MULTIPLE MYELOMA
     Dosage: 25 MG; QD X 14 DAYS, PO, 25 MG,1 IN 1 D, PO, 15 MG, EVERY M, W, F X 3 WEEKS ON 1 WEEK OFF, PO
     Route: 048
     Dates: start: 20110524
  4. GABAPENTIN [Concomitant]
  5. PLAVIX [Concomitant]
  6. PRADAXA (DABIGATRAN ETEXILATE MESILATE) [Concomitant]
  7. ASPIRIN [Concomitant]
  8. MELOXICAM [Concomitant]
  9. VITAMIN B12 (CYANOCOBALAMIN)(UNKNOWN) [Concomitant]
  10. CALCIUM WITH VITAMIN D (CALCIUM WITH VITAMIN D)(UNKNOWN) [Concomitant]
  11. ZOMETA [Concomitant]

REACTIONS (1)
  - TRANSIENT ISCHAEMIC ATTACK [None]
